FAERS Safety Report 8541715-3 (Version None)
Quarter: 2012Q3

REPORT INFORMATION
  Report Type: 
  Country: None (occurrence: None)
  Receive Date: 20120726
  Receipt Date: 19930901
  Transmission Date: 20120928
  Serious: Yes (Death)
  Sender: FDA-Public Use
  Company Number: US-ROCHE-1086847

PATIENT
  Age: 61 Year
  Sex: Male

DRUGS (6)
  1. DOBUTAMINE HCL [Concomitant]
  2. NOREPINEPHRINE [Concomitant]
  3. HEPARIN [Concomitant]
     Dosage: 5000 UNITS
  4. ACTIVASE [Suspect]
     Indication: PULMONARY EMBOLISM
     Dates: start: 19930813
  5. DOPAMINE HCL [Concomitant]
  6. EPINEPHRINE [Concomitant]

REACTIONS (1)
  - DEATH [None]
